FAERS Safety Report 6249745-1 (Version None)
Quarter: 2009Q2

REPORT INFORMATION
  Report Type: 
  Country: None (occurrence: None)
  Receive Date: 20090629
  Receipt Date: 20090624
  Transmission Date: 20091009
  Serious: Yes (Life-Threatening, Other)
  Sender: FDA-Public Use
  Company Number: JP-WYE-H09807609

PATIENT
  Sex: Male

DRUGS (5)
  1. ZOSYN [Suspect]
     Indication: PNEUMONIA ASPIRATION
     Dosage: 4.5 G ONE TO TWO TIMES PER DAY
     Route: 041
     Dates: start: 20090528, end: 20090530
  2. ZANTAC [Concomitant]
     Route: 041
     Dates: start: 20090528
  3. AMINOTRIPA 1 [Concomitant]
     Route: 041
     Dates: start: 20090528
  4. OMEGACIN [Suspect]
     Indication: PNEUMONIA ASPIRATION
     Dosage: 0.3 TO 0.6 G PER DAY
     Route: 041
     Dates: start: 20090530, end: 20090531
  5. DIGOSIN [Concomitant]
     Route: 041
     Dates: start: 20090528

REACTIONS (9)
  - ACUTE RESPIRATORY DISTRESS SYNDROME [None]
  - ALANINE AMINOTRANSFERASE INCREASED [None]
  - ASPARTATE AMINOTRANSFERASE INCREASED [None]
  - BLOOD ALKALINE PHOSPHATASE INCREASED [None]
  - BLOOD BILIRUBIN INCREASED [None]
  - GAMMA-GLUTAMYLTRANSFERASE INCREASED [None]
  - HEPATIC FUNCTION ABNORMAL [None]
  - HYPERSENSITIVITY [None]
  - HYPOALBUMINAEMIA [None]
